FAERS Safety Report 8012644-9 (Version None)
Quarter: 2011Q4

REPORT INFORMATION
  Report Type: 
  Country: None (occurrence: None)
  Receive Date: 20111222
  Receipt Date: 20111214
  Transmission Date: 20120403
  Serious: No
  Sender: FDA-Public Use
  Company Number: 2011-4791

PATIENT
  Age: 12 Year
  Sex: Male
  Weight: 37 kg

DRUGS (1)
  1. INCRELEX [Suspect]
     Indication: INSULIN-LIKE GROWTH FACTOR DECREASED
     Dosage: 8 MG (4 MG, 2 IN 1 D), SUBCUTANEOUS
     Route: 058
     Dates: start: 20100401

REACTIONS (1)
  - BODY MASS INDEX INCREASED [None]
